FAERS Safety Report 24056331 (Version 1)
Quarter: 2024Q3

REPORT INFORMATION
  Report Type: Spontaneous
  Country: US (occurrence: US)
  Receive Date: 20240705
  Receipt Date: 20240705
  Transmission Date: 20241017
  Serious: No
  Sender: EMERGENT BIOSOLUTIONS
  Company Number: US-Emergent Biosolutions-24000086

PATIENT
  Age: 22 Year
  Sex: Female

DRUGS (5)
  1. NARCAN [Suspect]
     Active Substance: NALOXONE HYDROCHLORIDE
     Indication: Overdose
     Dosage: UNK
     Route: 065
  2. OXYCODONE [Concomitant]
     Active Substance: OXYCODONE
     Indication: Substance use
     Dosage: UNK, 1-2 PILLS
     Route: 065
  3. XANAX [Concomitant]
     Active Substance: ALPRAZOLAM
     Indication: Substance use
     Dosage: UNK, 2 PILLS
     Route: 065
  4. CANNABIS SATIVA SUBSP. INDICA TOP [Concomitant]
     Active Substance: CANNABIS SATIVA SUBSP. INDICA TOP
     Indication: Substance use
     Dosage: UNK, 01 JOINT
     Route: 065
  5. NITROUS OXIDE [Concomitant]
     Active Substance: NITROUS OXIDE
     Indication: Substance use
     Dosage: UNK , 6-8 AEROSOLIZED CANS OF WHIPPED CREAM

REACTIONS (1)
  - Therapeutic response decreased [Unknown]
